FAERS Safety Report 13333567 (Version 1)
Quarter: 2017Q1

REPORT INFORMATION
  Report Type: Spontaneous
  Country: BR (occurrence: US)
  Receive Date: 20170314
  Receipt Date: 20170314
  Transmission Date: 20170428
  Serious: No
  Sender: FDA-Public Use
  Company Number: BR-009507513-1702BRA006683

PATIENT
  Sex: Female

DRUGS (2)
  1. IMPLANON [Suspect]
     Active Substance: ETONOGESTREL
     Dosage: 1 DF, UNK
     Route: 059
  2. IMPLANON [Suspect]
     Active Substance: ETONOGESTREL
     Indication: CONTRACEPTION
     Dosage: 1 ROD, FOR THREE YEARS
     Route: 059

REACTIONS (4)
  - Adverse event [Unknown]
  - Contusion [Recovered/Resolved]
  - Scar [Unknown]
  - Amenorrhoea [Unknown]
